FAERS Safety Report 18935138 (Version 1)
Quarter: 2021Q1

REPORT INFORMATION
  Report Type: Spontaneous
  Country: US (occurrence: US)
  Receive Date: 20210224
  Receipt Date: 20210224
  Transmission Date: 20210420
  Serious: No
  Sender: FDA-Public Use
  Company Number: US-TERSERA THERAPEUTICS LLC-2020TRS001477

PATIENT

DRUGS (2)
  1. DILAUDID [Suspect]
     Active Substance: HYDROMORPHONE HYDROCHLORIDE
     Indication: BACK PAIN
     Dosage: UNK
     Route: 037
     Dates: start: 202003, end: 2020
  2. PRIALT [Suspect]
     Active Substance: ZICONOTIDE ACETATE
     Indication: BACK PAIN
     Dosage: UNK
     Route: 037
     Dates: start: 202001, end: 2020

REACTIONS (2)
  - Memory impairment [Not Recovered/Not Resolved]
  - Hypersensitivity [Not Recovered/Not Resolved]

NARRATIVE: CASE EVENT DATE: 2020
